FAERS Safety Report 11360169 (Version 2)
Quarter: 2015Q3

REPORT INFORMATION
  Report Type: Report from Study
  Country: BR (occurrence: BR)
  Receive Date: 20150810
  Receipt Date: 20150825
  Transmission Date: 20151125
  Serious: Yes (Other)
  Sender: FDA-Public Use
  Company Number: PHHY2015BR096021

PATIENT
  Sex: Female
  Weight: 63 kg

DRUGS (3)
  1. CERAZETTE [Concomitant]
     Active Substance: DESOGESTREL
     Indication: ORAL CONTRACEPTION
     Dosage: 1 DF (1.5 MG), QD (STARTED USING 2 YEARS AGO)
     Route: 048
  2. GILENYA [Suspect]
     Active Substance: FINGOLIMOD HYDROCHLORIDE
     Indication: MULTIPLE SCLEROSIS
     Dosage: 0.5 MG, QD
     Route: 048
     Dates: start: 2014, end: 201506
  3. FLUOXETINE [Concomitant]
     Active Substance: FLUOXETINE\FLUOXETINE HYDROCHLORIDE
     Indication: ANXIETY
     Dosage: 1 DF (20 MG), QD, (STARTED USING ANE AND HALF YEAR AGO)
     Route: 048

REACTIONS (2)
  - Central nervous system lesion [Not Recovered/Not Resolved]
  - Treatment failure [Unknown]
